FAERS Safety Report 7546786-9 (Version None)
Quarter: 2011Q2

REPORT INFORMATION
  Report Type: 
  Country: None (occurrence: None)
  Receive Date: 20110614
  Receipt Date: 20110602
  Transmission Date: 20111010
  Serious: Yes (Life-Threatening, Hospitalization, Other)
  Sender: FDA-Public Use
  Company Number: JP-ROCHE-773153

PATIENT
  Sex: Male
  Weight: 46 kg

DRUGS (6)
  1. XELODA [Suspect]
     Dosage: NOTE:DOSAGE IS UNCERTAIN.
     Route: 048
     Dates: start: 20110203, end: 20110303
  2. OXALIPLATIN [Concomitant]
     Dosage: NOTE:DOSAGE IS UNCERTAIN.
     Route: 041
     Dates: start: 20110105
  3. AVASTIN [Suspect]
     Indication: RECTAL CANCER
     Route: 041
     Dates: start: 20110105
  4. GRANISETRON [Concomitant]
     Route: 042
     Dates: start: 20110105
  5. XELODA [Suspect]
     Indication: RECTAL CANCER RECURRENT
     Route: 048
     Dates: start: 20110105
  6. DECADRON [Concomitant]
     Route: 042
     Dates: start: 20110105

REACTIONS (9)
  - PLATELET COUNT DECREASED [None]
  - DEHYDRATION [None]
  - SYSTEMIC CANDIDA [None]
  - DIARRHOEA [None]
  - PNEUMONIA ASPIRATION [None]
  - VOMITING [None]
  - NEUROPATHY PERIPHERAL [None]
  - RENAL FAILURE [None]
  - NEUTROPENIA [None]
